FAERS Safety Report 14367396 (Version 1)
Quarter: 2018Q1

REPORT INFORMATION
  Report Type: Spontaneous
  Country: US (occurrence: US)
  Receive Date: 20180108
  Receipt Date: 20180108
  Transmission Date: 20180509
  Serious: No
  Sender: FDA-Public Use
  Company Number: None

PATIENT
  Age: 66 Year
  Sex: Male
  Weight: 96.75 kg

DRUGS (4)
  1. VITAMIN C [Concomitant]
     Active Substance: ASCORBIC ACID
  2. BIOASTIN [Concomitant]
  3. SUPER BETA PROSTRATE SUP [Concomitant]
  4. OXYCODONE TAB 5MG [Suspect]
     Active Substance: OXYCODONE
     Indication: HERNIA
     Dosage: ?          QUANTITY:1 TABLET(S);?
     Route: 048
     Dates: start: 20180105, end: 20180106

REACTIONS (5)
  - Product quality issue [None]
  - Therapy non-responder [None]
  - Sleep disorder [None]
  - Dry mouth [None]
  - Product counterfeit [None]

NARRATIVE: CASE EVENT DATE: 20180105
